FAERS Safety Report 13460691 (Version 1)
Quarter: 2017Q2

REPORT INFORMATION
  Report Type: Spontaneous
  Country: US (occurrence: US)
  Receive Date: 20170419
  Receipt Date: 20170419
  Transmission Date: 20170830
  Serious: No
  Sender: FDA-Public Use
  Company Number: None

PATIENT
  Age: 38 Year
  Sex: Female
  Weight: 57.2 kg

DRUGS (1)
  1. BUPRENORPHINE NAXOLONE 8/2MG [Suspect]
     Active Substance: BUPRENORPHINE HYDROCHLORIDE\NALOXONE HYDROCHLORIDE
     Indication: DRUG USE DISORDER
     Route: 060
     Dates: start: 20170306, end: 20170320

REACTIONS (1)
  - Vomiting [None]

NARRATIVE: CASE EVENT DATE: 20170306
